FAERS Safety Report 6093886-9 (Version None)
Quarter: 2009Q1

REPORT INFORMATION
  Report Type: 
  Country: None (occurrence: None)
  Receive Date: 20090219
  Receipt Date: 20081209
  Transmission Date: 20090719
  Serious: No
  Sender: FDA-Public Use
  Company Number: WAES 0812USA02154

PATIENT
  Age: 74 Year
  Sex: Female

DRUGS (3)
  1. JANUVIA [Suspect]
     Indication: GLUCOSE URINE PRESENT
     Dosage: 100 MG/DAILY/PO
     Route: 048
     Dates: start: 20080201, end: 20081208
  2. AVAPRO [Concomitant]
  3. CRESTOR [Concomitant]

REACTIONS (4)
  - ALOPECIA [None]
  - DYSPEPSIA [None]
  - FATIGUE [None]
  - PAIN IN EXTREMITY [None]
